FAERS Safety Report 14852101 (Version 1)
Quarter: 2018Q2

REPORT INFORMATION
  Report Type: Spontaneous
  Country: DE (occurrence: DE)
  Receive Date: 20180507
  Receipt Date: 20180507
  Transmission Date: 20180711
  Serious: Yes (Other)
  Sender: FDA-Public Use
  Company Number: DE-ABBVIE-18S-062-2343033-00

PATIENT
  Sex: Male

DRUGS (3)
  1. ERGENYL CHRONO [Suspect]
     Active Substance: VALPROIC ACID
     Indication: EPILEPSY
     Route: 048
     Dates: start: 1998, end: 2016
  2. ASS HEXAL PROTECT [Suspect]
     Active Substance: ASPIRIN
     Indication: CEREBELLAR INFARCTION
     Route: 048
     Dates: start: 2009
  3. VALSARTAN. [Concomitant]
     Active Substance: VALSARTAN
     Indication: PRODUCT USED FOR UNKNOWN INDICATION

REACTIONS (2)
  - Polyneuropathy [Unknown]
  - Tremor [Unknown]
